FAERS Safety Report 4965832-X (Version None)
Quarter: 2006Q2

REPORT INFORMATION
  Report Type: 
  Country: None (occurrence: None)
  Receive Date: 20060407
  Receipt Date: 20060220
  Transmission Date: 20061013
  Serious: Yes (Hospitalization)
  Sender: FDA-Public Use
  Company Number: JP-BRISTOL-MYERS SQUIBB COMPANY-13290309

PATIENT
  Age: 54 Year
  Sex: Female

DRUGS (8)
  1. TAXOL [Suspect]
     Indication: OVARIAN CANCER
     Route: 042
     Dates: start: 20051206, end: 20051206
  2. PARAPLATIN [Suspect]
     Indication: OVARIAN CANCER
     Route: 042
     Dates: start: 20051206, end: 20051206
  3. LENOGRASTIM [Concomitant]
     Dates: start: 20051217, end: 20051220
  4. FAMOTIDINE [Concomitant]
     Route: 048
     Dates: start: 20050921
  5. ATORVASTATIN CALCIUM [Concomitant]
     Route: 048
     Dates: start: 20050921
  6. DOXAZOSIN MESYLATE [Concomitant]
     Route: 048
     Dates: start: 20050921
  7. FERROUS FUMARATE [Concomitant]
     Route: 048
     Dates: start: 20051121
  8. DICLOFENAC SODIUM [Concomitant]
     Route: 048
     Dates: start: 20050921

REACTIONS (1)
  - CHOLECYSTITIS ACUTE [None]
